FAERS Safety Report 12240707 (Version 1)
Quarter: 2016Q2

REPORT INFORMATION
  Report Type: Not Available
  Country: DK (occurrence: DK)
  Receive Date: 20160406
  Receipt Date: 20160406
  Transmission Date: 20160815
  Serious: Yes (Other)
  Sender: FDA-Public Use
  Company Number: DK-AUROBINDO-AUR-APL-2016-04298

PATIENT
  Age: 26 Year
  Sex: Female

DRUGS (3)
  1. VENLAFAXIN HEXAL [Concomitant]
     Active Substance: VENLAFAXINE HYDROCHLORIDE
     Indication: PRODUCT USED FOR UNKNOWN INDICATION
     Dosage: UNK
     Dates: end: 20141119
  2. QUETIAPINE ACCORD HEALTHCARE [Concomitant]
     Indication: PRODUCT USED FOR UNKNOWN INDICATION
     Dosage: UNK
     Route: 065
     Dates: start: 20141215
  3. LAMOTRIGINE AUROBINDO TABLETS 25MG [Suspect]
     Active Substance: LAMOTRIGINE
     Indication: PRODUCT USED FOR UNKNOWN INDICATION
     Dosage: 25 MG, UNK
     Route: 065
     Dates: start: 20160108, end: 20160205

REACTIONS (3)
  - Erythema multiforme [Unknown]
  - Pyrexia [Unknown]
  - Alanine aminotransferase increased [Unknown]
